FAERS Safety Report 11368666 (Version 1)
Quarter: 2015Q3

REPORT INFORMATION
  Report Type: Spontaneous
  Country: MX (occurrence: MX)
  Receive Date: 20150812
  Receipt Date: 20150812
  Transmission Date: 20151125
  Serious: Yes (Death, Other)
  Sender: FDA-Public Use
  Company Number: MX-ROCHE-1619467

PATIENT
  Sex: Female

DRUGS (1)
  1. HERCEPTIN [Suspect]
     Active Substance: TRASTUZUMAB
     Indication: BREAST CANCER
     Route: 042

REACTIONS (7)
  - Suspected counterfeit product [Unknown]
  - Sepsis [Unknown]
  - Peripheral venous disease [Fatal]
  - Cardiac failure [Unknown]
  - Arterial occlusive disease [Unknown]
  - Cellulitis [Unknown]
  - Toxicity to various agents [Unknown]
